FAERS Safety Report 10193497 (Version 1)
Quarter: 2014Q2

REPORT INFORMATION
  Report Type: Spontaneous
  Country: US (occurrence: US)
  Receive Date: 20140524
  Receipt Date: 20140524
  Transmission Date: 20141212
  Serious: No
  Sender: FDA-Public Use
  Company Number: US-SA-2014SA004781

PATIENT
  Age: 61 Year
  Sex: Male

DRUGS (1)
  1. LANTUS [Suspect]
     Indication: TYPE 2 DIABETES MELLITUS
     Dosage: START DATE- 3 YEARS AGO DOSE:5 UNIT(S)
     Route: 051

REACTIONS (3)
  - Blood glucose increased [Unknown]
  - White blood cell count increased [Unknown]
  - Injection site pain [Unknown]
